FAERS Safety Report 13678571 (Version 3)
Quarter: 2017Q3

REPORT INFORMATION
  Report Type: Spontaneous
  Country: VN (occurrence: VN)
  Receive Date: 20170622
  Receipt Date: 20170808
  Transmission Date: 20171127
  Serious: Yes (Other)
  Sender: FDA-Public Use
  Company Number: VN-PFIZER INC-2017269420

PATIENT
  Age: 50 Year
  Sex: Female

DRUGS (6)
  1. GENTAMICIN. [Concomitant]
     Active Substance: GENTAMICIN
     Dosage: 80 MG, SINGLE
     Route: 030
     Dates: start: 20170617, end: 20170617
  2. VITAMIN B1 [Concomitant]
     Active Substance: THIAMINE HYDROCHLORIDE
     Dosage: UNK, SINGLE
     Route: 030
     Dates: start: 20170617, end: 20170617
  3. VITAMIN B12 [Concomitant]
     Active Substance: CYANOCOBALAMIN
     Dosage: UNK, SINGLE
     Route: 030
     Dates: start: 20170617, end: 20170617
  4. SOLU-MEDROL [Suspect]
     Active Substance: METHYLPREDNISOLONE SODIUM SUCCINATE
     Indication: INFLUENZA
     Dosage: 40 MG, SINGLE
     Route: 042
     Dates: start: 20170617, end: 20170617
  5. DIMEDROL [Concomitant]
     Active Substance: DIPHENHYDRAMINE
     Dosage: UNK, SINGLE
     Route: 030
     Dates: start: 20170617, end: 20170617
  6. PARACETAMOL [Concomitant]
     Active Substance: ACETAMINOPHEN
     Dosage: UNK, SINGLE
     Route: 054
     Dates: start: 20170617, end: 20170617

REACTIONS (5)
  - Chest pain [Recovered/Resolved]
  - Headache [Recovered/Resolved]
  - Urinary retention [Recovered/Resolved]
  - Nausea [Recovered/Resolved]
  - Dyspnoea [Recovered/Resolved]

NARRATIVE: CASE EVENT DATE: 20170617
